FAERS Safety Report 8576467-4 (Version None)
Quarter: 2012Q3

REPORT INFORMATION
  Report Type: 
  Country: None (occurrence: None)
  Receive Date: 20120725
  Receipt Date: 20120711
  Transmission Date: 20120928
  Serious: Yes (Death)
  Sender: FDA-Public Use
  Company Number: FK201201939

PATIENT
  Age: 7 Month
  Sex: Female

DRUGS (5)
  1. ACYCLOVIR SODIUM [Suspect]
     Indication: HERPES ZOSTER
     Dosage: INTRAVENOUS (NOT OTHERWISE SPECIFIED)
  2. IVIG (IMMUNOGLOBULIN) [Suspect]
     Indication: HERPES ZOSTER
     Dosage: INTRAVENOUS (NOT OTHERWISE SPECIFIED)
  3. VALPROATE SODIUM [Concomitant]
  4. ZONISAMIDE [Concomitant]
  5. CORTICOTROPIN [Suspect]
     Indication: EPILEPSY
     Dosage: 0.005 MG/KG, ONCE EVERY MORNING

REACTIONS (15)
  - PLEURAL EFFUSION [None]
  - RESPIRATORY FAILURE [None]
  - HAEMORRHAGE INTRACRANIAL [None]
  - BRAIN OEDEMA [None]
  - RASH [None]
  - ASCITES [None]
  - SHOCK HAEMORRHAGIC [None]
  - RESPIRATORY DISTRESS [None]
  - HEPATIC FAILURE [None]
  - CARDIOVASCULAR INSUFFICIENCY [None]
  - MULTI-ORGAN FAILURE [None]
  - CAPILLARY LEAK SYNDROME [None]
  - DISSEMINATED INTRAVASCULAR COAGULATION [None]
  - GENERAL PHYSICAL HEALTH DETERIORATION [None]
  - HERPES ZOSTER [None]
